FAERS Safety Report 15549908 (Version 2)
Quarter: 2018Q4

REPORT INFORMATION
  Report Type: Spontaneous
  Country: JP (occurrence: JP)
  Receive Date: 20181025
  Receipt Date: 20181219
  Transmission Date: 20190205
  Serious: Yes (Hospitalization)
  Sender: FDA-Public Use
  Company Number: JP-ABBVIE-18P-087-2496794-00

PATIENT
  Age: 78 Year
  Sex: Male

DRUGS (2)
  1. BICALUTAMIDE. [Concomitant]
     Active Substance: BICALUTAMIDE
     Indication: PRODUCT USED FOR UNKNOWN INDICATION
     Dosage: UNK
     Route: 048
  2. LEUPRORELIN ACETATE [Suspect]
     Active Substance: LEUPROLIDE ACETATE
     Indication: PROSTATE CANCER
     Dosage: 11.25 MG, Q3MONTHS
     Route: 058

REACTIONS (1)
  - Cataract [Recovered/Resolved]

NARRATIVE: CASE EVENT DATE: 201809
